FAERS Safety Report 7058369-8 (Version None)
Quarter: 2010Q4

REPORT INFORMATION
  Report Type: 
  Country: None (occurrence: None)
  Receive Date: 20101022
  Receipt Date: 20101011
  Transmission Date: 20110411
  Serious: Yes (Other)
  Sender: FDA-Public Use
  Company Number: US-PFIZER INC-2010116556

PATIENT
  Age: 78 Year
  Sex: Female

DRUGS (18)
  1. TOVIAZ [Suspect]
     Indication: HYPERTONIC BLADDER
     Dosage: 4 MG, 1X/DAY
     Route: 048
     Dates: start: 20100808, end: 20100809
  2. ALPHAGAN [Concomitant]
     Dosage: 0.1% SOLUTION
     Dates: start: 20090502
  3. ACETYLSALICYLIC ACID [Concomitant]
     Dosage: 81 MG, 1X/DAY
     Dates: start: 20061016
  4. AVAPRO [Concomitant]
     Dosage: TAKE 1/2 TABLET DAILY
     Dates: start: 20080418
  5. AZOPT [Concomitant]
     Dosage: 1% SUSPENSION
     Dates: start: 20100609
  6. CALTRATE + D [Concomitant]
     Dosage: 600 MG, 1X/DAY
     Dates: start: 20061016
  7. CELEBREX [Concomitant]
     Dosage: 200 MG, 1X/DAY
     Dates: start: 20090526
  8. CRANBERRY [Concomitant]
     Dosage: UNK
     Dates: start: 20070411
  9. EVISTA [Concomitant]
     Dosage: 60 MG, 1X/DAY
     Dates: start: 20061016
  10. FUROSEMIDE [Concomitant]
     Dosage: 20 MG, 1X/DAY
     Dates: start: 20080418
  11. MACROGOL [Concomitant]
     Dosage: 1 CAPFUL DAILY, DECREASE FOR LOOSE STOOLS
     Dates: start: 20100629
  12. LIPITOR [Concomitant]
     Dosage: 80 MG, 1X/DAY
     Dates: start: 20080630
  13. MULTI-VITAMINS [Concomitant]
     Dosage: TAKE TABLET
     Dates: start: 20061016
  14. NYSTATIN [Concomitant]
     Dosage: 100000 UNIT/GM POWDER
     Dates: start: 20100629
  15. PROPAFENONE HYDROCHLORIDE [Concomitant]
     Dosage: 225 MG, 2X/DAY
     Dates: start: 20061016
  16. VITAMIN B COMPLEX CAP [Concomitant]
     Dosage: UNK
     Dates: start: 20061016
  17. ASCORBIC ACID [Concomitant]
     Dosage: 500 MG, 2X/DAY
     Dates: start: 20061016
  18. XALATAN [Concomitant]
     Dosage: UNK

REACTIONS (1)
  - URINARY RETENTION [None]
